FAERS Safety Report 18774928 (Version 1)
Quarter: 2021Q1

REPORT INFORMATION
  Report Type: Spontaneous
  Country: PL (occurrence: PL)
  Receive Date: 20210122
  Receipt Date: 20210122
  Transmission Date: 20210419
  Serious: Yes (Other)
  Sender: FDA-Public Use
  Company Number: PL-PURDUE-USA-2021-0199747

PATIENT
  Age: 39 Year
  Sex: Male

DRUGS (8)
  1. MOVALIS [Concomitant]
     Active Substance: MELOXICAM
     Indication: PRODUCT USED FOR UNKNOWN INDICATION
     Dosage: 15 MG, DAILY (15 MG, QD)
     Route: 065
     Dates: start: 20201023
  2. MOVALIS [Concomitant]
     Active Substance: MELOXICAM
     Dosage: 15 MG, DAILY (15 MG, QD)
     Route: 065
     Dates: start: 20200221
  3. OXYCODONE HYDROCHLORIDE. [Suspect]
     Active Substance: OXYCODONE HYDROCHLORIDE
     Indication: ANKYLOSING SPONDYLITIS
     Dosage: 15 G, DAILY (15 G, QD)
     Route: 065
     Dates: start: 201811
  4. BACLOFEN. [Concomitant]
     Active Substance: BACLOFEN
     Indication: PRODUCT USED FOR UNKNOWN INDICATION
     Dosage: 30 MG, DAILY (30 MG, QD)
     Route: 065
     Dates: start: 20190926
  5. MOVALIS [Concomitant]
     Active Substance: MELOXICAM
     Dosage: 15 MG, DAILY (15 MG, QD)
     Route: 065
     Dates: start: 20190926
  6. TRAMADOL. [Concomitant]
     Active Substance: TRAMADOL
     Indication: PRODUCT USED FOR UNKNOWN INDICATION
     Dosage: 50 MG, DAILY (50 MG, QD)
     Route: 065
     Dates: start: 20190925
  7. NIMESULIDE [Concomitant]
     Active Substance: NIMESULIDE
     Indication: PRODUCT USED FOR UNKNOWN INDICATION
     Dosage: UNK
     Route: 065
  8. DICLOFENAC [Concomitant]
     Active Substance: DICLOFENAC
     Indication: PRODUCT USED FOR UNKNOWN INDICATION
     Dosage: UNK
     Route: 065

REACTIONS (1)
  - Tuberculosis [Unknown]
